FAERS Safety Report 20689782 (Version 1)
Quarter: 2022Q2

REPORT INFORMATION
  Report Type: Spontaneous
  Country: US (occurrence: None)
  Receive Date: 20220407
  Receipt Date: 20220407
  Transmission Date: 20220721
  Serious: Yes (Other)
  Sender: FDA-Public Use
  Company Number: None

PATIENT
  Age: 63 Year
  Sex: Male
  Weight: 97.1 kg

DRUGS (1)
  1. LUSPATERCEPT [Suspect]
     Active Substance: LUSPATERCEPT
     Indication: Anaemia
     Dosage: OTHER FREQUENCY : EVERY 3 WEEKS;?
     Route: 058
     Dates: start: 20210125, end: 20210422

REACTIONS (5)
  - Fat necrosis [None]
  - Anaemia [None]
  - Skin lesion [None]
  - Dermatitis [None]
  - Soft tissue inflammation [None]

NARRATIVE: CASE EVENT DATE: 20210401
